FAERS Safety Report 9007122 (Version 1)
Quarter: 2013Q1

REPORT INFORMATION
  Report Type: Spontaneous
  Country: US (occurrence: US)
  Receive Date: 20130110
  Receipt Date: 20130110
  Transmission Date: 20140127
  Serious: Yes (Other)
  Sender: FDA-Public Use
  Company Number: US-MERCK-1301USA001579

PATIENT
  Age: 27 Year
  Sex: Male

DRUGS (6)
  1. MONTELUKAST SODIUM [Suspect]
     Indication: ILL-DEFINED DISORDER
     Dosage: 10 MG, QD
  2. CELEXA [Suspect]
     Dosage: 20 MG, QD
     Route: 048
  3. CHLOR-TRIPOLON [Suspect]
     Dosage: 2 UNIT PER DAY
  4. PULMICORT [Suspect]
  5. SEREVENT DISKUS [Suspect]
     Route: 055
  6. VENTOLIN (ALBUTEROL) [Suspect]
     Route: 055

REACTIONS (7)
  - Visual impairment [Unknown]
  - Tremor [Unknown]
  - Panic reaction [Unknown]
  - Mental impairment [Unknown]
  - Hypoaesthesia [Unknown]
  - Drug interaction [Unknown]
  - Dizziness [Unknown]
